FAERS Safety Report 26191135 (Version 1)
Quarter: 2025Q4

REPORT INFORMATION
  Report Type: Spontaneous
  Country: US (occurrence: None)
  Receive Date: 20251222
  Receipt Date: 20251222
  Transmission Date: 20260118
  Serious: Yes (Hospitalization)
  Sender: FDA-CTU
  Company Number: None

PATIENT
  Age: 46 Year
  Sex: Male
  Weight: 69.9 kg

DRUGS (3)
  1. MIRCERA [Suspect]
     Active Substance: METHOXY POLYETHYLENE GLYCOL-EPOETIN BETA
     Dosage: 30 MICROGRAM(S) /MICROGRAM(S) UGM/UGM BI-MONTHLY
     Route: 042
     Dates: start: 20251202, end: 20251216
  2. DEVICE [Concomitant]
     Active Substance: DEVICE
  3. DIPHENHYDRAMINE [Concomitant]
     Active Substance: DIPHENHYDRAMINE

REACTIONS (8)
  - Malaise [None]
  - Hypersensitivity [None]
  - Dyspnoea [None]
  - Tachycardia [None]
  - Dizziness [None]
  - Hypotension [None]
  - Oxygen saturation decreased [None]
  - Dialysis [None]

NARRATIVE: CASE EVENT DATE: 20251216
